FAERS Safety Report 20933186 (Version 2)
Quarter: 2022Q3

REPORT INFORMATION
  Report Type: Spontaneous
  Country: JP (occurrence: JP)
  Receive Date: 20220608
  Receipt Date: 20220713
  Transmission Date: 20221026
  Serious: Yes (Hospitalization)
  Sender: FDA-Public Use
  Company Number: JP-MYLANLABS-2022M1042324

PATIENT
  Age: 78 Year
  Sex: Male
  Weight: 51.2 kg

DRUGS (13)
  1. CARBOPLATIN [Suspect]
     Active Substance: CARBOPLATIN
     Indication: Squamous cell carcinoma of lung
     Dosage: 46 MILLIGRAM, QD
     Route: 041
     Dates: start: 20210312, end: 20210315
  2. BISOPROLOL FUMARATE [Concomitant]
     Active Substance: BISOPROLOL FUMARATE
     Indication: Product used for unknown indication
     Route: 048
  3. TORASEMIDE OD TE [Concomitant]
     Indication: Product used for unknown indication
     Route: 048
  4. BEPRIDIL [Concomitant]
     Active Substance: BEPRIDIL
     Indication: Product used for unknown indication
     Route: 048
  5. XARELTO [Concomitant]
     Active Substance: RIVAROXABAN
     Indication: Product used for unknown indication
     Route: 048
  6. VALSARTAN TOWA [Concomitant]
     Indication: Product used for unknown indication
     Route: 048
  7. AMLODIPINE [Concomitant]
     Active Substance: AMLODIPINE BESYLATE
     Indication: Product used for unknown indication
     Route: 048
  8. APRINDINE HYDROCHLORIDE [Concomitant]
     Active Substance: APRINDINE HYDROCHLORIDE
     Indication: Product used for unknown indication
     Route: 048
  9. BERBERINE\GERANIUM [Concomitant]
     Active Substance: BERBERINE\GERANIUM
     Indication: Product used for unknown indication
     Route: 048
  10. PROCATEROL HYDROCHLORIDE [Concomitant]
     Active Substance: PROCATEROL HYDROCHLORIDE
     Indication: Product used for unknown indication
  11. SILODOSIN OD DSEP [Concomitant]
     Indication: Product used for unknown indication
     Route: 048
  12. Dutasteride av [Concomitant]
     Indication: Product used for unknown indication
     Route: 048
  13. RAMOSETRON HYDROCHLORIDE [Concomitant]
     Active Substance: RAMOSETRON HYDROCHLORIDE
     Indication: Product used for unknown indication
     Route: 048

REACTIONS (1)
  - Inappropriate antidiuretic hormone secretion [Recovering/Resolving]

NARRATIVE: CASE EVENT DATE: 20210316
